FAERS Safety Report 18596017 (Version 1)
Quarter: 2020Q4

REPORT INFORMATION
  Report Type: Spontaneous
  Country: US (occurrence: US)
  Receive Date: 20201209
  Receipt Date: 20201209
  Transmission Date: 20210114
  Serious: No
  Sender: FDA-Public Use
  Company Number: US-SUPERNUS PHARMACEUTICALS, INC.-2020SUP00443

PATIENT
  Sex: Male
  Weight: 90.72 kg

DRUGS (3)
  1. TROKENDI XR [Suspect]
     Active Substance: TOPIRAMATE
     Indication: MIGRAINE
     Dosage: 100 MG, 1X/DAY
  2. UNSPECIFIED MEDICATIONS [Concomitant]
     Active Substance: UNSPECIFIED INGREDIENT
  3. LYRICA [Concomitant]
     Active Substance: PREGABALIN
     Dosage: 2 CAPSULES IN THE MORNING AND 3 CAPSULES AT NIGHT
     Route: 048
     Dates: start: 2004

REACTIONS (1)
  - Aphasia [Not Recovered/Not Resolved]
